FAERS Safety Report 5391223-6 (Version None)
Quarter: 2007Q3

REPORT INFORMATION
  Report Type: 
  Country: None (occurrence: None)
  Receive Date: 20070717
  Receipt Date: 20070706
  Transmission Date: 20080115
  Serious: Yes (Hospitalization, Other)
  Sender: FDA-Public Use
  Company Number: 37915-2

PATIENT
  Age: 65 Year
  Sex: Male

DRUGS (1)
  1. ETOPOSIDE [Suspect]
     Indication: SMALL CELL LUNG CANCER STAGE UNSPECIFIED
     Dosage: 570MG/IV
     Route: 042
     Dates: start: 20070417

REACTIONS (2)
  - AGITATION [None]
  - CEREBRAL INFARCTION [None]
